FAERS Safety Report 9464341 (Version 1)
Quarter: 2013Q3

REPORT INFORMATION
  Report Type: Spontaneous
  Country: US (occurrence: US)
  Receive Date: 20130819
  Receipt Date: 20130819
  Transmission Date: 20140515
  Serious: Yes (Hospitalization, Other)
  Sender: FDA-Public Use
  Company Number: US-TEVA-426325USA

PATIENT
  Age: 36 Year
  Sex: Female

DRUGS (1)
  1. PHENTERMINE [Suspect]
     Dosage: FOR TWO YEARS
     Route: 065

REACTIONS (2)
  - Colitis ischaemic [Recovering/Resolving]
  - Intentional drug misuse [Recovering/Resolving]
